FAERS Safety Report 20413051 (Version 2)
Quarter: 2022Q1

REPORT INFORMATION
  Report Type: Spontaneous
  Country: CN (occurrence: CN)
  Receive Date: 20220201
  Receipt Date: 20220203
  Transmission Date: 20220424
  Serious: Yes (Other)
  Sender: FDA-Public Use
  Company Number: CN-009507513-2201CHN008739

PATIENT
  Age: 58 Year
  Sex: Male
  Weight: 82 kg

DRUGS (2)
  1. CILASTATIN SODIUM\IMIPENEM [Suspect]
     Active Substance: CILASTATIN SODIUM\IMIPENEM
     Indication: Appendiceal abscess
     Dosage: DOSE: 500 MG, FREQUENCY: EVERY 8 HOURS (Q8H); ROUTE: INTRAVENOUS DRIP
     Route: 041
     Dates: start: 20220108, end: 20220112
  2. SODIUM CHLORIDE [Concomitant]
     Active Substance: SODIUM CHLORIDE
     Dosage: 100 ML, Q8H
     Dates: start: 20220108

REACTIONS (2)
  - Delirium [Recovering/Resolving]
  - Treatment noncompliance [Unknown]

NARRATIVE: CASE EVENT DATE: 20220101
